FAERS Safety Report 23375757 (Version 3)
Quarter: 2024Q2

REPORT INFORMATION
  Report Type: Report from Study
  Country: US (occurrence: US)
  Receive Date: 20240107
  Receipt Date: 20240515
  Transmission Date: 20240716
  Serious: Yes (Hospitalization, Other)
  Sender: FDA-Public Use
  Company Number: US-ABBVIE-5571813

PATIENT
  Sex: Male

DRUGS (1)
  1. VENCLEXTA [Suspect]
     Active Substance: VENETOCLAX
     Indication: Myelodysplastic syndrome with excess blasts
     Dosage: FORM STRENGTH: 100 MILLIGRAM
     Route: 048

REACTIONS (8)
  - Liver abscess [Unknown]
  - Intestinal obstruction [Unknown]
  - Off label use [Unknown]
  - Memory impairment [Unknown]
  - Transfusion [Unknown]
  - Cerebrovascular accident [Unknown]
  - Pyrexia [Unknown]
  - Heart rate increased [Unknown]

NARRATIVE: CASE EVENT DATE: 20180101
